FAERS Safety Report 9834162 (Version 1)
Quarter: 2014Q1

REPORT INFORMATION
  Report Type: Spontaneous
  Country: HU (occurrence: HU)
  Receive Date: 20140122
  Receipt Date: 20140122
  Transmission Date: 20141002
  Serious: Yes (Hospitalization)
  Sender: FDA-Public Use
  Company Number: HU-AMGEN-HUNSP2012084983

PATIENT
  Age: 54 Year
  Sex: Male

DRUGS (7)
  1. ENBREL [Suspect]
     Indication: PSORIATIC ARTHROPATHY
     Dosage: 50 MG, WEEKLY
     Route: 058
     Dates: start: 20111214, end: 20120627
  2. MELOXEP [Concomitant]
     Indication: PSORIATIC ARTHROPATHY
     Dosage: 15 MG, 1X/DAY AS NEEDED
     Route: 048
     Dates: start: 20111214
  3. RIFAMED [Concomitant]
     Indication: LATENT TUBERCULOSIS
     Dosage: 300 MG, 2X/DAY
     Route: 048
     Dates: start: 20120306, end: 20120714
  4. CARVOL [Concomitant]
     Indication: HYPERLIPIDAEMIA
     Dosage: UNSPECIFIED DOSE, ONCE A DAY
     Route: 048
     Dates: start: 20111006
  5. TOBRADEX [Concomitant]
     Dosage: UNSPECIFIED DOSE, ONCE A DAY
     Route: 048
     Dates: start: 20111006
  6. RAMACE [Concomitant]
     Indication: HYPERTENSION
     Dosage: UNSPECIFIED DOSE, ONCE A DAY
     Route: 048
     Dates: start: 20111006
  7. RAMACE PLUSZ [Concomitant]
     Indication: HYPERTENSION
     Dosage: UNSPECIFIED DOSE, ONCE A DAY
     Route: 048
     Dates: start: 20111006

REACTIONS (3)
  - Tooth disorder [Not Recovered/Not Resolved]
  - Sinusitis [Not Recovered/Not Resolved]
  - Chronic sinusitis [Not Recovered/Not Resolved]
